FAERS Safety Report 12726257 (Version 4)
Quarter: 2025Q3

REPORT INFORMATION
  Report Type: Spontaneous
  Country: AU (occurrence: AU)
  Receive Date: 20160908
  Receipt Date: 20250903
  Transmission Date: 20251021
  Serious: Yes (Hospitalization, Other)
  Sender: PFIZER
  Company Number: AU-MLMSERVICE-20160831-0409863-1

PATIENT
  Age: 88 Year
  Sex: Female

DRUGS (9)
  1. DOXEPIN HYDROCHLORIDE [Suspect]
     Active Substance: DOXEPIN HYDROCHLORIDE
  2. NEBIVOLOL [Suspect]
     Active Substance: NEBIVOLOL
  3. PREGABALIN [Suspect]
     Active Substance: PREGABALIN
  4. TRIMETHOPRIM [Suspect]
     Active Substance: TRIMETHOPRIM
     Indication: Urinary tract infection
  5. QUINAPRIL [Concomitant]
     Active Substance: QUINAPRIL
  6. ATORVASTATIN [Concomitant]
     Active Substance: ATORVASTATIN
  7. FUROSEMIDE [Concomitant]
     Active Substance: FUROSEMIDE
  8. HEXAMINE HIPPURATE [Concomitant]
  9. WARFARIN [Concomitant]
     Active Substance: WARFARIN

REACTIONS (1)
  - Hyperkalaemia [Recovering/Resolving]
